FAERS Safety Report 19158609 (Version 13)
Quarter: 2022Q1

REPORT INFORMATION
  Report Type: Report from Study
  Country: US (occurrence: US)
  Receive Date: 20210420
  Receipt Date: 20220214
  Transmission Date: 20220423
  Serious: Yes (Death, Hospitalization, Other)
  Sender: FDA-Public Use
  Company Number: US-GLAXOSMITHKLINE-US2021AMR083940

PATIENT
  Age: 58 Year
  Sex: Female

DRUGS (1)
  1. BELANTAMAB MAFODOTIN [Suspect]
     Active Substance: BELANTAMAB MAFODOTIN
     Indication: Product used for unknown indication
     Dosage: 21 DAYS APPROX, 2.5 MG/KG INTRAVENOUS INFUSION Q3WK
     Route: 042
     Dates: start: 20210218, end: 20211021

REACTIONS (12)
  - Death [Fatal]
  - Corneal epithelium defect [Unknown]
  - Plasma cell myeloma [Unknown]
  - Hospitalisation [Unknown]
  - Keratopathy [Unknown]
  - Visual acuity reduced [Unknown]
  - Vision blurred [Unknown]
  - Corneal disorder [Unknown]
  - Corneal epithelial microcysts [Recovering/Resolving]
  - Night blindness [Unknown]
  - Dry eye [Unknown]
  - Foreign body sensation in eyes [Unknown]

NARRATIVE: CASE EVENT DATE: 20210331
